FAERS Safety Report 7353310-2 (Version None)
Quarter: 2011Q1

REPORT INFORMATION
  Report Type: 
  Country: None (occurrence: None)
  Receive Date: 20110315
  Receipt Date: 20110301
  Transmission Date: 20110831
  Serious: Yes (Hospitalization, Other)
  Sender: FDA-Public Use
  Company Number: US-ACTELION-A-US2009-32229

PATIENT

DRUGS (17)
  1. TRACLEER [Suspect]
     Dosage: 31.25 MG, BID
     Route: 048
     Dates: start: 20100712
  2. DARVOCET [Concomitant]
  3. MS CONTIN [Concomitant]
  4. TRACLEER [Suspect]
     Dosage: 62.5 MG, BID
     Route: 048
     Dates: start: 20100201, end: 20100609
  5. METHOTREXATE [Concomitant]
  6. TRACLEER [Suspect]
     Dosage: UNK MG, BID
     Route: 048
     Dates: start: 20091202
  7. REMICADE [Concomitant]
  8. ALBUTEROL [Concomitant]
  9. HYDROXYUREA [Concomitant]
  10. TRACLEER [Suspect]
     Dosage: 31.25 MG, BID
     Route: 048
     Dates: start: 20080723
  11. REGLAN [Concomitant]
  12. TRACLEER [Suspect]
     Indication: PULMONARY ARTERIAL HYPERTENSION
     Dosage: 31.25 MG, BID
     Route: 048
     Dates: start: 20101207
  13. PRILOSEC [Concomitant]
  14. ADVAIR DISKUS 100/50 [Concomitant]
  15. FOLIC ACID [Concomitant]
  16. K-DUR [Concomitant]
  17. EXJADE [Concomitant]

REACTIONS (7)
  - LIVER FUNCTION TEST ABNORMAL [None]
  - HAEMOGLOBIN DECREASED [None]
  - ASPARTATE AMINOTRANSFERASE INCREASED [None]
  - BLOOD BILIRUBIN INCREASED [None]
  - SICKLE CELL ANAEMIA WITH CRISIS [None]
  - PNEUMONIA [None]
  - DEHYDRATION [None]
